FAERS Safety Report 4286637-1 (Version None)
Quarter: 2004Q1

REPORT INFORMATION
  Report Type: 
  Country: None (occurrence: None)
  Receive Date: 20040206
  Receipt Date: 20031009
  Transmission Date: 20041129
  Serious: Yes (Hospitalization, Disabling)
  Sender: FDA-Public Use
  Company Number: WAES 0310USA01296

PATIENT
  Age: 52 Year
  Sex: Female
  Weight: 105 kg

DRUGS (8)
  1. LIPITOR [Concomitant]
  2. PREMARIN [Concomitant]
     Indication: MENOPAUSE
     Route: 048
     Dates: start: 19920101, end: 20020201
  3. ALLEGRA [Concomitant]
     Indication: HYPERSENSITIVITY
  4. CLARITIN-D [Concomitant]
     Route: 048
     Dates: start: 19991011
  5. ADALAT [Concomitant]
     Route: 048
     Dates: start: 19920101, end: 20011101
  6. ZANTAC [Concomitant]
  7. VIOXX [Suspect]
     Indication: OSTEOARTHRITIS
     Route: 048
     Dates: start: 19991001, end: 20020101
  8. COVERA-HS [Concomitant]
     Indication: BLOOD PRESSURE
     Dates: start: 19920101, end: 20011101

REACTIONS (14)
  - ARTHRALGIA [None]
  - BACK PAIN [None]
  - BLOOD CHOLESTEROL INCREASED [None]
  - BUNION [None]
  - BURSITIS [None]
  - CAROTID ARTERY ATHEROMA [None]
  - CAROTID ARTERY STENOSIS [None]
  - CEREBROVASCULAR ACCIDENT [None]
  - CHEST PAIN [None]
  - DIABETES MELLITUS [None]
  - DIZZINESS [None]
  - FALL [None]
  - INFECTION [None]
  - PAIN [None]
